FAERS Safety Report 4599137-6 (Version None)
Quarter: 2005Q1

REPORT INFORMATION
  Report Type: 
  Country: None (occurrence: None)
  Receive Date: 20050302
  Receipt Date: 20050224
  Transmission Date: 20050727
  Serious: Yes (Hospitalization)
  Sender: FDA-Public Use
  Company Number: 2005-00695

PATIENT
  Age: 33 Year
  Sex: Female

DRUGS (1)
  1. HYDROXYPROGESTERONE CAPROATE (WATSON LABORATORIES) (HYDROXYPROGESTERON [Suspect]
     Dosage: INTRAMUSCULAR
     Route: 030

REACTIONS (1)
  - PARKINSONISM [None]
